FAERS Safety Report 19856910 (Version 2)
Quarter: 2021Q4

REPORT INFORMATION
  Report Type: Spontaneous
  Country: MA (occurrence: MA)
  Receive Date: 20210920
  Receipt Date: 20211216
  Transmission Date: 20220303
  Serious: No
  Sender: FDA-Public Use
  Company Number: MA-PFIZER INC-202101073718

PATIENT
  Age: 13 Year
  Sex: Male

DRUGS (1)
  1. GENOTROPIN [Suspect]
     Active Substance: SOMATROPIN
     Indication: Growth failure
     Dosage: 1 MG, DAILY
     Route: 058
     Dates: start: 20210813

REACTIONS (6)
  - Headache [Unknown]
  - Injection site haematoma [Unknown]
  - Product storage error [Unknown]
  - Device use error [Unknown]
  - Poor quality device used [Unknown]
  - Product odour abnormal [Unknown]

NARRATIVE: CASE EVENT DATE: 20210816
